FAERS Safety Report 6085674-4 (Version None)
Quarter: 2009Q1

REPORT INFORMATION
  Report Type: 
  Country: None (occurrence: None)
  Receive Date: 20090220
  Receipt Date: 20081031
  Transmission Date: 20090719
  Serious: Yes (Life-Threatening, Hospitalization, Disabling)
  Sender: FDA-Public Use
  Company Number: FR-ROCHE-594971

PATIENT
  Sex: Female

DRUGS (14)
  1. ROCEPHIN [Suspect]
     Indication: INFECTIVE THROMBOSIS
     Dosage: FORM: INJECTABLE SOLUTION
     Route: 042
     Dates: start: 20070822
  2. BACTRIM [Suspect]
     Indication: INFECTIVE THROMBOSIS
     Route: 048
     Dates: start: 20061004
  3. TEICOPLANIN [Suspect]
     Indication: INFECTIVE THROMBOSIS
     Route: 042
     Dates: start: 20060831
  4. THROMBOPOIETIN [Suspect]
     Indication: IDIOPATHIC THROMBOCYTOPENIC PURPURA
     Dosage: DRUG: ROMIPLOSTIM (AMG 531)
     Route: 058
     Dates: start: 20060518, end: 20061005
  5. HEPARIN [Suspect]
     Indication: INFECTIVE THROMBOSIS
     Dosage: DRUG: HEPARIN
     Route: 042
     Dates: start: 20060823, end: 20060831
  6. VANCOMYCIN [Suspect]
     Indication: INFECTIVE THROMBOSIS
     Route: 042
     Dates: start: 20070822
  7. GENTAMICIN SULFATE [Suspect]
     Indication: INFECTIVE THROMBOSIS
     Route: 042
     Dates: start: 20060822
  8. ZOLPIDEM [Concomitant]
  9. ALPRAZOLAM [Concomitant]
     Dates: start: 20061016
  10. CALCIUM FOLINATE [Concomitant]
     Dates: start: 20061004
  11. ZOLMITRIPTAN [Concomitant]
     Route: 048
     Dates: start: 20061019
  12. TRAMADOL HYDROCHLORIDE [Concomitant]
     Route: 042
     Dates: start: 20060822, end: 20060830
  13. DESLORATADINE [Concomitant]
     Indication: INFECTIVE THROMBOSIS
     Route: 048
     Dates: start: 20060825, end: 20060827
  14. BETAMETHASONE [Concomitant]
     Route: 048
     Dates: start: 20060825, end: 20060827

REACTIONS (3)
  - IDIOPATHIC THROMBOCYTOPENIC PURPURA [None]
  - THROMBOCYTOPENIA [None]
  - TRANSIENT ISCHAEMIC ATTACK [None]
